FAERS Safety Report 9775170 (Version 1)
Quarter: 2013Q4

REPORT INFORMATION
  Report Type: Spontaneous
  Country: GB (occurrence: GB)
  Receive Date: 20131220
  Receipt Date: 20131220
  Transmission Date: 20140711
  Serious: Yes (Other)
  Sender: FDA-Public Use
  Company Number: GB-TEVA-450898ISR

PATIENT
  Sex: Male

DRUGS (3)
  1. METFORMIN [Suspect]
  2. GLICLAZIDE [Suspect]
     Route: 065
  3. APROVEL [Suspect]
     Indication: HYPERTENSION
     Dosage: 75 MILLIGRAM DAILY;
     Route: 048

REACTIONS (2)
  - Diabetes mellitus [Unknown]
  - Visual impairment [Unknown]
